FAERS Safety Report 4660037-4 (Version None)
Quarter: 2005Q2

REPORT INFORMATION
  Report Type: 
  Country: None (occurrence: None)
  Receive Date: 20050512
  Receipt Date: 20050504
  Transmission Date: 20051028
  Serious: Yes (Death)
  Sender: FDA-Public Use
  Company Number: GB-BOEHRINGER INGELHEIM PHARMACEUTICALS, INC.-2005-UK-00762UK

PATIENT
  Age: 74 Year
  Sex: Female
  Weight: 82 kg

DRUGS (5)
  1. SPIRIVA [Suspect]
     Indication: CHRONIC OBSTRUCTIVE PULMONARY DISEASE
     Route: 055
     Dates: start: 20050308, end: 20050410
  2. DICLOFENAC SODIUM [Concomitant]
     Indication: ARTHRITIS
     Route: 048
     Dates: start: 20030101, end: 20050410
  3. LANSOPRAZOLE [Concomitant]
     Indication: ARTHRITIS
     Route: 048
     Dates: start: 20030101, end: 20050410
  4. FRUSEMIDE [Concomitant]
     Indication: DYSPNOEA
     Route: 048
     Dates: start: 20040701, end: 20050410
  5. RAMIPRIL [Concomitant]
     Indication: DYSPNOEA
     Route: 048
     Dates: start: 20040801, end: 20050410

REACTIONS (2)
  - DEEP VEIN THROMBOSIS [None]
  - PULMONARY EMBOLISM [None]
